FAERS Safety Report 25690575 (Version 1)
Quarter: 2025Q3

REPORT INFORMATION
  Report Type: Spontaneous
  Country: US (occurrence: None)
  Receive Date: 20250815
  Receipt Date: 20250815
  Transmission Date: 20251021
  Serious: Yes (Life-Threatening, Hospitalization, Disabling, Other)
  Sender: FDA-CTU
  Company Number: None

PATIENT
  Age: 47 Year
  Sex: Male
  Weight: 85.5 kg

DRUGS (12)
  1. VENLAFAXINE HYDROCHLORIDE [Suspect]
     Active Substance: VENLAFAXINE HYDROCHLORIDE
     Indication: Anxiety
     Route: 048
     Dates: start: 20240510, end: 20250813
  2. VENLAFAXINE HYDROCHLORIDE [Suspect]
     Active Substance: VENLAFAXINE HYDROCHLORIDE
     Indication: Depression
  3. VISTARIL [Suspect]
     Active Substance: HYDROXYZINE PAMOATE
  4. BUSPAR [Suspect]
     Active Substance: BUSPIRONE HYDROCHLORIDE
  5. LEXAPRO [Suspect]
     Active Substance: ESCITALOPRAM OXALATE
  6. CRESTOR [Concomitant]
     Active Substance: ROSUVASTATIN CALCIUM
  7. PREDNISONE [Concomitant]
     Active Substance: PREDNISONE
  8. PROZAC [Concomitant]
     Active Substance: FLUOXETINE HYDROCHLORIDE
  9. BACTRIM [Concomitant]
     Active Substance: SULFAMETHOXAZOLE\TRIMETHOPRIM
  10. PRILOSEC [Concomitant]
     Active Substance: OMEPRAZOLE MAGNESIUM
  11. TRAZODONE [Concomitant]
     Active Substance: TRAZODONE HYDROCHLORIDE
  12. VITAMINS [Concomitant]
     Active Substance: VITAMINS

REACTIONS (9)
  - Therapy non-responder [None]
  - Suicidal ideation [None]
  - Anxiety [None]
  - General physical health deterioration [None]
  - Acute kidney injury [None]
  - pH body fluid abnormal [None]
  - Haemodialysis [None]
  - Laboratory test abnormal [None]
  - Dialysis [None]

NARRATIVE: CASE EVENT DATE: 20250722
